FAERS Safety Report 22105984 (Version 3)
Quarter: 2024Q3

REPORT INFORMATION
  Report Type: Spontaneous
  Country: US (occurrence: US)
  Receive Date: 20230317
  Receipt Date: 20240806
  Transmission Date: 20241017
  Serious: No
  Sender: SANOFI AVENTIS
  Company Number: US-SA-SAC20230313001157

PATIENT
  Age: 86 Year
  Sex: Female

DRUGS (19)
  1. DUPIXENT [Suspect]
     Active Substance: DUPILUMAB
     Indication: Dermatitis atopic
     Dosage: 300 MG, QOW
     Route: 058
  2. ALBUTEROL [Concomitant]
     Active Substance: ALBUTEROL
  3. ALLOPURINOL [Concomitant]
     Active Substance: ALLOPURINOL
     Dosage: POW
  4. BIOTIN [Concomitant]
     Active Substance: BIOTIN
     Dosage: POW
  5. SOL [Concomitant]
  6. FOLATE SODIUM [Concomitant]
     Active Substance: FOLATE SODIUM
  7. FUROSEMIDE [Concomitant]
     Active Substance: FUROSEMIDE
     Dosage: POW
  8. LISINOPRIL [Concomitant]
     Active Substance: LISINOPRIL
     Dosage: POW
  9. OMEPRAZOLE [Concomitant]
     Active Substance: OMEPRAZOLE
     Dosage: POW
  10. POTASSIUM [Concomitant]
     Active Substance: POTASSIUM
     Dosage: 99MG
  11. PROBIOTICS NOS [Concomitant]
     Active Substance: PROBIOTICS NOS
  12. CYANOCOBALAMIN [Concomitant]
     Active Substance: CYANOCOBALAMIN
  13. VITAMIN D NOS [Concomitant]
     Active Substance: CHOLECALCIFEROL\ERGOCALCIFEROL
  14. ZINC [Concomitant]
     Active Substance: ZINC
     Dosage: 100MG
  15. VITAMINS NOS [Concomitant]
     Active Substance: VITAMINS
  16. MAGNESIUM [Concomitant]
     Active Substance: MAGNESIUM
  17. HYDROCORTISONE ACETATE [Concomitant]
     Active Substance: HYDROCORTISONE ACETATE
  18. STOOL SOFTENER (DOCUSATE) [Concomitant]
     Active Substance: DOCUSATE
  19. VITAMIN C [Concomitant]
     Active Substance: ASCORBIC ACID
     Dosage: POW

REACTIONS (8)
  - Muscle spasms [Not Recovered/Not Resolved]
  - Sleep disorder due to a general medical condition [Not Recovered/Not Resolved]
  - Dry skin [Unknown]
  - Nasopharyngitis [Not Recovered/Not Resolved]
  - Nasal congestion [Not Recovered/Not Resolved]
  - Pruritus [Not Recovered/Not Resolved]
  - Therapeutic response shortened [Not Recovered/Not Resolved]
  - Dry eye [Unknown]

NARRATIVE: CASE EVENT DATE: 20230301
